FAERS Safety Report 8932301 (Version 1)
Quarter: 2012Q4

REPORT INFORMATION
  Report Type: 
  Country: US (occurrence: US)
  Receive Date: 20121128
  Receipt Date: 20121128
  Transmission Date: 20130627
  Serious: Yes (Other)
  Sender: FDA-Public Use
  Company Number: US-PFIZER INC-2012296149

PATIENT
  Sex: Female

DRUGS (1)
  1. DEPO-PROVERA [Suspect]
     Dosage: UNK

REACTIONS (6)
  - Ectopic pregnancy [Unknown]
  - Depression [Unknown]
  - Acne [Unknown]
  - Weight abnormal [Unknown]
  - Endocrine disorder [Unknown]
  - Incorrect dose administered [Unknown]
